APPROVED DRUG PRODUCT: NOREPINEPHRINE BITARTRATE IN 5% DEXTROSE
Active Ingredient: NOREPINEPHRINE BITARTRATE
Strength: EQ 16MG BASE/250ML (EQ 64MCG BASE/ML)
Dosage Form/Route: SOLUTION;INTRAVENOUS
Application: N214313 | Product #003
Applicant: BAXTER HEALTHCARE CORP
Approved: Nov 21, 2023 | RLD: Yes | RS: Yes | Type: RX

PATENTS:
Patent 12097170 | Expires: Mar 8, 2041